FAERS Safety Report 20429738 (Version 2)
Quarter: 2022Q1

REPORT INFORMATION
  Report Type: Spontaneous
  Country: MX (occurrence: MX)
  Receive Date: 20220204
  Receipt Date: 20220321
  Transmission Date: 20220423
  Serious: Yes (Hospitalization)
  Sender: FDA-Public Use
  Company Number: MX-LUNDBECK-DKLU3043904

PATIENT
  Age: 7 Year
  Sex: Male
  Weight: 26 kg

DRUGS (5)
  1. CLOBAZAM [Suspect]
     Active Substance: CLOBAZAM
     Indication: Seizure
     Route: 048
     Dates: start: 202107, end: 202202
  2. CLOBAZAM [Suspect]
     Active Substance: CLOBAZAM
     Route: 048
     Dates: start: 202202
  3. CLOBAZAM [Suspect]
     Active Substance: CLOBAZAM
     Route: 048
     Dates: start: 202202
  4. LACTULOSE [Concomitant]
     Active Substance: LACTULOSE
     Indication: Constipation
     Route: 065
     Dates: start: 2020
  5. LEVETIRACETAM [Concomitant]
     Active Substance: LEVETIRACETAM
     Indication: Seizure
     Dosage: 100 MG/ML
     Route: 048
     Dates: start: 2020

REACTIONS (9)
  - Seizure [Recovered/Resolved]
  - Pneumonia [Recovered/Resolved]
  - Pneumonia [Recovered/Resolved]
  - Septic shock [Recovered/Resolved]
  - Gastrointestinal infection [Recovered/Resolved]
  - Tremor [Unknown]
  - Off label use [Unknown]
  - Off label use [Unknown]
  - Wrong technique in product usage process [Unknown]

NARRATIVE: CASE EVENT DATE: 20210701
